FAERS Safety Report 7118715-3 (Version None)
Quarter: 2010Q4

REPORT INFORMATION
  Report Type: 
  Country: None (occurrence: None)
  Receive Date: 20101123
  Receipt Date: 20101111
  Transmission Date: 20110411
  Serious: No
  Sender: FDA-Public Use
  Company Number: US-PFIZER INC-2010148053

PATIENT
  Sex: Male
  Weight: 73 kg

DRUGS (8)
  1. PRISTIQ [Suspect]
     Indication: OESOPHAGEAL SPASM
     Dosage: 50 MG, 1X/DAY
     Route: 048
     Dates: start: 20101001
  2. PRISTIQ [Suspect]
     Indication: OFF LABEL USE
  3. LUNESTA [Concomitant]
     Indication: SLEEP DISORDER
     Dosage: UNK
  4. DARVOCET [Concomitant]
     Indication: RHEUMATOID ARTHRITIS
     Dosage: UNK
  5. NEXIUM [Concomitant]
     Dosage: UNK
  6. AMLODIPINE BESYLATE/VALSARTAN [Concomitant]
     Dosage: UNK
  7. CRESTOR [Concomitant]
     Dosage: UNK
  8. SULFASALAZINE [Concomitant]
     Dosage: UNK

REACTIONS (2)
  - CONSTIPATION [None]
  - NAUSEA [None]
